FAERS Safety Report 17539750 (Version 1)
Quarter: 2020Q1

REPORT INFORMATION
  Report Type: Spontaneous
  Country: US (occurrence: US)
  Receive Date: 20200313
  Receipt Date: 20200313
  Transmission Date: 20200409
  Serious: No
  Sender: FDA-Public Use
  Company Number: US-TEVA-2020-US-1195471

PATIENT
  Sex: Male

DRUGS (2)
  1. DAPSONE. [Concomitant]
     Active Substance: DAPSONE
     Indication: EYE DISORDER
     Route: 065
  2. PROAIR HFA [Suspect]
     Active Substance: ALBUTEROL SULFATE
     Route: 065

REACTIONS (4)
  - Feeling abnormal [Unknown]
  - Inappropriate schedule of product administration [Unknown]
  - Intentional product use issue [Unknown]
  - Nervousness [Unknown]

NARRATIVE: CASE EVENT DATE: 2020
